FAERS Safety Report 12531464 (Version 1)
Quarter: 2016Q3

REPORT INFORMATION
  Report Type: Spontaneous
  Country: US (occurrence: US)
  Receive Date: 20160706
  Receipt Date: 20160706
  Transmission Date: 20161109
  Serious: Yes (Hospitalization, Other)
  Sender: FDA-Public Use
  Company Number: US-AMGEN-USASP2016083717

PATIENT
  Sex: Female

DRUGS (2)
  1. XELJANZ [Suspect]
     Active Substance: TOFACITINIB CITRATE
     Indication: RHEUMATOID ARTHRITIS
     Dosage: 5 MG, BID
     Route: 065
     Dates: start: 201511
  2. PROLIA [Suspect]
     Active Substance: DENOSUMAB
     Indication: PRODUCT USED FOR UNKNOWN INDICATION
     Dosage: UNK UNK, Q6MO
     Route: 065
     Dates: start: 201511

REACTIONS (8)
  - Impaired healing [Recovered/Resolved]
  - Tooth abscess [Recovered/Resolved]
  - Swelling face [Recovered/Resolved]
  - Tooth fracture [Recovered/Resolved]
  - Feeling hot [Recovered/Resolved]
  - Gingival erythema [Recovered/Resolved]
  - Decreased immune responsiveness [Unknown]
  - Pyrexia [Recovered/Resolved]
